FAERS Safety Report 25874091 (Version 1)
Quarter: 2025Q4

REPORT INFORMATION
  Report Type: Spontaneous
  Country: CA (occurrence: CA)
  Receive Date: 20251002
  Receipt Date: 20251002
  Transmission Date: 20260117
  Serious: Yes (Other)
  Sender: PFIZER
  Company Number: CA-PFIZER INC-PV202500116465

PATIENT
  Age: 38 Year
  Sex: Male

DRUGS (2)
  1. BEVACIZUMAB [Suspect]
     Active Substance: BEVACIZUMAB
     Indication: Craniopharyngioma
     Dosage: 7.5 MG/KG, EVERY 3 WEEKS
  2. TOCILIZUMAB [Suspect]
     Active Substance: TOCILIZUMAB
     Indication: Craniopharyngioma
     Dosage: UNK (8 MG/KG Q3 WEEKS [N=2] OR 4 MG/KG Q4 WEEKS [N=1])

REACTIONS (8)
  - Cerebral cavernous malformation [Unknown]
  - Neutropenia [Unknown]
  - Haemorrhage [Unknown]
  - Sinusitis [Unknown]
  - Fatigue [Unknown]
  - Hypertension [Unknown]
  - Off label use [Unknown]
  - Drug effective for unapproved indication [Unknown]
